FAERS Safety Report 9889600 (Version 1)
Quarter: 2014Q1

REPORT INFORMATION
  Report Type: Spontaneous
  Country: US (occurrence: US)
  Receive Date: 20140211
  Receipt Date: 20140211
  Transmission Date: 20141002
  Serious: Yes (Death)
  Sender: FDA-Public Use
  Company Number: US-ASTRAZENECA-2014SE09382

PATIENT
  Age: 217 Day
  Sex: Female
  Weight: 4.9 kg

DRUGS (2)
  1. SYNAGIS [Suspect]
     Route: 030
     Dates: end: 20140123
  2. INFLUENZA INJECTION [Suspect]
     Route: 065
     Dates: start: 20140123

REACTIONS (1)
  - Death [Fatal]
